FAERS Safety Report 7299000-6 (Version None)
Quarter: 2011Q1

REPORT INFORMATION
  Report Type: 
  Country: None (occurrence: None)
  Receive Date: 20110217
  Receipt Date: 20110214
  Transmission Date: 20110831
  Serious: Yes (Life-Threatening)
  Sender: FDA-Public Use
  Company Number: FR-B.I. PHARMACEUTICALS,INC./RIDGEFIELD-2009-FF-00295FF

PATIENT
  Age: 55 Year
  Sex: Male

DRUGS (1)
  1. IV PERSANTINE [Suspect]
     Indication: RADIOISOTOPE SCAN
     Dosage: 56 MG
     Route: 042
     Dates: start: 20090309

REACTIONS (3)
  - DYSPNOEA [None]
  - BRONCHOSPASM [None]
  - RESPIRATORY ARREST [None]
